FAERS Safety Report 9894764 (Version 2)
Quarter: 2014Q1

REPORT INFORMATION
  Report Type: Spontaneous
  Country: US (occurrence: US)
  Receive Date: 20140213
  Receipt Date: 20140304
  Transmission Date: 20141002
  Serious: Yes (Other)
  Sender: FDA-Public Use
  Company Number: US-SA-2014SA017896

PATIENT
  Age: 68 Year
  Sex: Female
  Weight: 88.45 kg

DRUGS (12)
  1. LANTUS SOLOSTAR [Suspect]
     Indication: TYPE 2 DIABETES MELLITUS
     Dosage: 60 U AM + 30 U?PM
     Route: 065
     Dates: start: 2011
  2. SOLOSTAR [Concomitant]
     Indication: TYPE 2 DIABETES MELLITUS
     Dates: start: 2011
  3. METFORMIN HYDROCHLORIDE [Concomitant]
     Indication: DIABETES MELLITUS
  4. HYDROCHLOROTHIAZIDE [Concomitant]
     Dosage: FREQUENCY: 1 CAP.
  5. RAMIPRIL [Concomitant]
  6. PRISTIQ [Concomitant]
  7. AMLODIPINE [Concomitant]
  8. ASPIRIN [Concomitant]
  9. PANTOPRAZOLE [Concomitant]
  10. METOPROLOL [Concomitant]
  11. ATORVASTATIN [Concomitant]
  12. NOVOLOG [Concomitant]
     Dosage: 10 UNITS AM AND 5 UNITS AFTERNOON

REACTIONS (1)
  - Cerebrovascular accident [Unknown]
